FAERS Safety Report 7417557-9 (Version None)
Quarter: 2011Q2

REPORT INFORMATION
  Report Type: 
  Country: None (occurrence: None)
  Receive Date: 20110415
  Receipt Date: 20110412
  Transmission Date: 20111010
  Serious: Yes (Other)
  Sender: FDA-Public Use
  Company Number: US-PFIZER INC-2010151623

PATIENT
  Sex: Male

DRUGS (2)
  1. ZOLOFT [Suspect]
  2. LYRICA [Suspect]

REACTIONS (1)
  - GASTRIC DISORDER [None]
